APPROVED DRUG PRODUCT: DESMOPRESSIN ACETATE PRESERVATIVE FREE
Active Ingredient: DESMOPRESSIN ACETATE
Strength: 0.004MG/ML
Dosage Form/Route: INJECTABLE;INJECTION
Application: A074574 | Product #001
Applicant: BEDFORD LABORATORIES DIV BEN VENUE LABORATORIES INC
Approved: Feb 18, 2000 | RLD: No | RS: No | Type: DISCN